FAERS Safety Report 10210113 (Version 2)
Quarter: 2014Q2

REPORT INFORMATION
  Report Type: Spontaneous
  Country: JP (occurrence: JP)
  Receive Date: 20140602
  Receipt Date: 20140620
  Transmission Date: 20141212
  Serious: Yes (Hospitalization, Other)
  Sender: FDA-Public Use
  Company Number: JP-009507513-1405JPN013438

PATIENT
  Age: 50 Year
  Sex: Male
  Weight: 65 kg

DRUGS (3)
  1. CLARITIN [Suspect]
     Indication: RHINITIS ALLERGIC
     Dosage: 10 MG, QD
     Route: 048
     Dates: start: 201404, end: 20140521
  2. CLARITH [Interacting]
     Indication: SINUSITIS
     Dosage: 200 MG, BID
     Route: 048
     Dates: start: 20140519, end: 20140521
  3. CLARITH [Interacting]
     Dosage: 200 MG, BID
     Route: 048
     Dates: start: 20140420, end: 20140425

REACTIONS (10)
  - Syncope [Recovered/Resolved]
  - Palpitations [Recovered/Resolved]
  - Tension [Not Recovered/Not Resolved]
  - Anxiety [Recovered/Resolved]
  - Hypoaesthesia [Unknown]
  - Asthenia [Unknown]
  - Insomnia [Recovering/Resolving]
  - Thirst [Unknown]
  - Presyncope [Unknown]
  - Drug interaction [Unknown]
